FAERS Safety Report 8340486-3 (Version None)
Quarter: 2012Q2

REPORT INFORMATION
  Report Type: 
  Country: None (occurrence: None)
  Receive Date: 20120507
  Receipt Date: 20090728
  Transmission Date: 20120825
  Serious: Yes (Hospitalization)
  Sender: FDA-Public Use
  Company Number: US-TEVA-2009008320

PATIENT
  Sex: Male
  Weight: 84.898 kg

DRUGS (1)
  1. TREANDA [Suspect]
     Indication: MANTLE CELL LYMPHOMA
     Dosage: 9.5238 MILLIGRAM;
     Route: 042
     Dates: start: 20081223, end: 20090408

REACTIONS (1)
  - NEUTROPENIA [None]
